FAERS Safety Report 6895282-0 (Version None)
Quarter: 2010Q3

REPORT INFORMATION
  Report Type: 
  Country: None (occurrence: None)
  Receive Date: 20100802
  Receipt Date: 20100728
  Transmission Date: 20110219
  Serious: Yes (Other)
  Sender: FDA-Public Use
  Company Number: US-MERCK-0608USA04482

PATIENT
  Age: 57 Year
  Sex: Female
  Weight: 61 kg

DRUGS (5)
  1. FOSAMAX [Suspect]
     Indication: OSTEOPOROSIS
     Route: 048
     Dates: start: 19981101, end: 20000510
  2. FOSAMAX [Suspect]
     Route: 048
     Dates: start: 20000501, end: 20000501
  3. FOSAMAX [Suspect]
     Route: 048
     Dates: start: 19981101
  4. ESTRACE [Concomitant]
     Indication: OSTEOPOROSIS
     Route: 048
     Dates: start: 19980101, end: 19990101
  5. ESTRACE [Concomitant]
     Route: 048
     Dates: start: 20000101, end: 20050101

REACTIONS (27)
  - ABDOMINAL PAIN LOWER [None]
  - ACTINIC KERATOSIS [None]
  - ADVERSE EVENT [None]
  - BONE DENSITY DECREASED [None]
  - BUNDLE BRANCH BLOCK RIGHT [None]
  - CAMPBELL DE MORGAN SPOTS [None]
  - CONSTIPATION [None]
  - DEPRESSION [None]
  - ECZEMA [None]
  - FATIGUE [None]
  - GASTROINTESTINAL DISORDER [None]
  - HAEMORRHOIDS [None]
  - HYPOAESTHESIA [None]
  - HYPOGLYCAEMIA [None]
  - IRRITABLE BOWEL SYNDROME [None]
  - MALAISE [None]
  - OEDEMA PERIPHERAL [None]
  - ONYCHOMYCOSIS [None]
  - ORAL PAIN [None]
  - OSTEONECROSIS OF JAW [None]
  - PERIODONTITIS [None]
  - PRURITUS [None]
  - SEBORRHOEIC KERATOSIS [None]
  - SINUSITIS [None]
  - TOOTH INFECTION [None]
  - TOOTH LOSS [None]
  - URTICARIA [None]
